FAERS Safety Report 13236645 (Version 1)
Quarter: 2017Q1

REPORT INFORMATION
  Report Type: Spontaneous
  Country: US (occurrence: US)
  Receive Date: 20170215
  Receipt Date: 20170215
  Transmission Date: 20170428
  Serious: Yes (Death)
  Sender: FDA-Public Use
  Company Number: US-INCYTE CORPORATION-2017IN001020

PATIENT
  Age: 81 Year
  Sex: Female

DRUGS (1)
  1. JAKAFI [Suspect]
     Active Substance: RUXOLITINIB
     Indication: MYELOFIBROSIS
     Dosage: 10 MG, QD (DAILY)
     Route: 048
     Dates: start: 20160715, end: 20170213

REACTIONS (1)
  - Death [Fatal]

NARRATIVE: CASE EVENT DATE: 20170213
